FAERS Safety Report 22353176 (Version 1)
Quarter: 2023Q2

REPORT INFORMATION
  Report Type: Report from Study
  Country: CA (occurrence: CA)
  Receive Date: 20230523
  Receipt Date: 20230523
  Transmission Date: 20230721
  Serious: Yes (Other)
  Sender: FDA-Public Use
  Company Number: CA-JNJFOC-20221265509

PATIENT
  Age: 47 Year
  Sex: Female
  Weight: 123.03 kg

DRUGS (1)
  1. REMICADE [Suspect]
     Active Substance: INFLIXIMAB
     Indication: Crohn^s disease
     Dosage: ON 24-MAR-2023, THE PATIENT RECEIVED 43RD 1100MG INFLIXIMAB INFUSION AND PARTIAL HARVEY-BRADSHAW WAS
     Route: 041
     Dates: start: 20160908

REACTIONS (5)
  - Crohn^s disease [Not Recovered/Not Resolved]
  - COVID-19 [Recovered/Resolved]
  - Retching [Unknown]
  - Weight decreased [Unknown]
  - Inappropriate schedule of product administration [Unknown]

NARRATIVE: CASE EVENT DATE: 20230310
